FAERS Safety Report 20955237 (Version 2)
Quarter: 2024Q3

REPORT INFORMATION
  Report Type: Spontaneous
  Country: US (occurrence: US)
  Receive Date: 20220614
  Receipt Date: 20240712
  Transmission Date: 20241017
  Serious: No
  Sender: PIERRE FABRE MEDICAMENT
  Company Number: US-PFM-2022-01964

PATIENT
  Sex: Female
  Weight: 9.79 kg

DRUGS (3)
  1. HEMANGEOL [Suspect]
     Active Substance: PROPRANOLOL HYDROCHLORIDE
     Indication: Haemangioma
     Dosage: 2.5 ML, IN THE MORNING
     Route: 048
     Dates: start: 20220207
  2. HEMANGEOL [Suspect]
     Active Substance: PROPRANOLOL HYDROCHLORIDE
     Dosage: 1.6 ML, IN THE EVENING
     Route: 048
  3. HEMANGEOL [Suspect]
     Active Substance: PROPRANOLOL HYDROCHLORIDE
     Dosage: 2.5 ML, QD (1/DAY)
     Route: 048

REACTIONS (5)
  - Gastrooesophageal reflux disease [Unknown]
  - Illness [Unknown]
  - Sleep disorder [Unknown]
  - Drug ineffective [Unknown]
  - Inappropriate schedule of product administration [Unknown]
